FAERS Safety Report 13508939 (Version 1)
Quarter: 2017Q2

REPORT INFORMATION
  Report Type: Spontaneous
  Country: US (occurrence: US)
  Receive Date: 20170503
  Receipt Date: 20170503
  Transmission Date: 20170830
  Serious: Yes (Hospitalization, Other)
  Sender: FDA-Public Use
  Company Number: US-SA-2017SA077191

PATIENT
  Age: 30 Year
  Sex: Male

DRUGS (2)
  1. SEVELAMER SALT NOT SPECIFIED [Suspect]
     Active Substance: SEVELAMER
     Route: 065
  2. LIOTHYRONINE SALT NOT SPECIFIED [Interacting]
     Active Substance: LIOTHYRONINE
     Indication: HYPOTHYROIDISM
     Route: 065

REACTIONS (9)
  - Central obesity [Recovering/Resolving]
  - Pleural effusion [Recovering/Resolving]
  - Madarosis [Recovering/Resolving]
  - Inhibitory drug interaction [Unknown]
  - Depressed mood [Recovering/Resolving]
  - Haemodynamic instability [Recovering/Resolving]
  - Thyroxine free decreased [Recovering/Resolving]
  - Blood thyroid stimulating hormone increased [Recovering/Resolving]
  - Pericardial effusion [Recovering/Resolving]
